FAERS Safety Report 17658036 (Version 3)
Quarter: 2020Q3

REPORT INFORMATION
  Report Type: Report from Study
  Country: US (occurrence: US)
  Receive Date: 20200411
  Receipt Date: 20200728
  Transmission Date: 20201102
  Serious: No
  Sender: FDA-Public Use
  Company Number: NVSC2020US097473

PATIENT
  Sex: Female

DRUGS (1)
  1. COSENTYX [Suspect]
     Active Substance: SECUKINUMAB
     Indication: PSORIASIS
     Dosage: 300 MG, Q4W
     Route: 058
     Dates: start: 20191026

REACTIONS (5)
  - Pain of skin [Not Recovered/Not Resolved]
  - Scab [Not Recovered/Not Resolved]
  - Skin mass [Not Recovered/Not Resolved]
  - Skin discolouration [Not Recovered/Not Resolved]
  - Pruritus [Not Recovered/Not Resolved]
